FAERS Safety Report 7922037 (Version 2)
Quarter: 2012Q4

REPORT INFORMATION
  Report Type: 
  Country: US (occurrence: US)
  Receive Date: 20110429
  Receipt Date: 20121120
  Transmission Date: 20130627
  Serious: No
  Sender: FDA-Public Use
  Company Number: US-ASTRAZENECA-2010SE58911

PATIENT
  Age: 38 Year
  Sex: Female

DRUGS (3)
  1. NEXIUM [Suspect]
     Route: 048
  2. PRILOSEC [Suspect]
     Route: 048
  3. PROTONIX [Suspect]
     Route: 065

REACTIONS (8)
  - Aphagia [Unknown]
  - Pelvic congestion [Unknown]
  - Adverse event [Unknown]
  - Haemorrhage [Unknown]
  - Nausea [Unknown]
  - Abdominal pain upper [Unknown]
  - Drug dose omission [Unknown]
  - Drug ineffective [Unknown]
